FAERS Safety Report 8924483 (Version 2)
Quarter: 2012Q4

REPORT INFORMATION
  Report Type: 
  Country: GB (occurrence: GB)
  Receive Date: 20121126
  Receipt Date: 20121203
  Transmission Date: 20130627
  Serious: Yes (Other)
  Sender: FDA-Public Use
  Company Number: PHHY2012GB105812

PATIENT
  Sex: Male

DRUGS (5)
  1. OMEPRAZOLE [Suspect]
     Indication: ABDOMINAL PAIN
     Dosage: UNK
     Dates: start: 201106
  2. OMEPRAZOLE [Suspect]
     Dosage: UNK
     Dates: start: 201109
  3. DOXYCYCLINE [Suspect]
     Indication: URINARY TRACT INFECTION
     Dosage: UNK
     Dates: start: 201111
  4. MINOCYCLINE [Suspect]
  5. SEROQUEL [Suspect]
     Indication: ANXIETY
     Dosage: UNK
     Route: 065

REACTIONS (18)
  - Gastric ulcer [Unknown]
  - Abdominal discomfort [Unknown]
  - Gastrooesophageal reflux disease [Unknown]
  - Photosensitivity reaction [Unknown]
  - Skin depigmentation [Unknown]
  - Skin discolouration [Unknown]
  - Skin exfoliation [Unknown]
  - Hair colour changes [Unknown]
  - Chromaturia [Unknown]
  - Melanocytic naevus [Unknown]
  - Dehydration [Unknown]
  - Tooth injury [Unknown]
  - Mass [Unknown]
  - Alopecia [Unknown]
  - Malaise [Unknown]
  - Headache [Unknown]
  - Dermatitis [Unknown]
  - Drug ineffective [Unknown]
